FAERS Safety Report 13455914 (Version 1)
Quarter: 2017Q2

REPORT INFORMATION
  Report Type: Report from Study
  Country: US (occurrence: US)
  Receive Date: 20170418
  Receipt Date: 20170418
  Transmission Date: 20170830
  Serious: Yes (Other)
  Sender: FDA-Public Use
  Company Number: PHEH2017US010543

PATIENT
  Sex: Female

DRUGS (6)
  1. TASIGNA [Suspect]
     Active Substance: NILOTINIB
     Indication: LEUKAEMIA
     Route: 065
  2. GLEEVEC [Suspect]
     Active Substance: IMATINIB MESYLATE
     Indication: LEUKAEMIA
     Route: 065
  3. SPRYCEL [Suspect]
     Active Substance: DASATINIB
     Indication: LEUKAEMIA
     Route: 065
  4. BENADRYL [Concomitant]
     Active Substance: DIPHENHYDRAMINE HYDROCHLORIDE
     Indication: PRODUCT USED FOR UNKNOWN INDICATION
     Route: 065
  5. FAMOTIDINE. [Concomitant]
     Active Substance: FAMOTIDINE
     Indication: PRODUCT USED FOR UNKNOWN INDICATION
     Route: 065
  6. PROCHLORPERAZINE. [Concomitant]
     Active Substance: PROCHLORPERAZINE
     Indication: PRODUCT USED FOR UNKNOWN INDICATION
     Route: 065

REACTIONS (8)
  - Swelling face [Unknown]
  - Pancreatitis [Unknown]
  - Gallbladder disorder [Unknown]
  - Pharyngeal oedema [Unknown]
  - Mouth swelling [Unknown]
  - Nausea [Unknown]
  - Gastric disorder [Unknown]
  - Lip swelling [Unknown]
